FAERS Safety Report 4796617-5 (Version None)
Quarter: 2005Q4

REPORT INFORMATION
  Report Type: 
  Country: None (occurrence: None)
  Receive Date: 20051013
  Receipt Date: 20050104
  Transmission Date: 20060501
  Serious: Yes (Hospitalization, Disabling)
  Sender: FDA-Public Use
  Company Number: FR-BRISTOL-MYERS SQUIBB COMPANY-12813556

PATIENT
  Age: 69 Year
  Sex: Male
  Weight: 67 kg

DRUGS (1)
  1. HYDREA [Suspect]
     Indication: ESSENTIAL THROMBOCYTHAEMIA
     Dosage: 500 MG EVEN DAYS AND 1000 MG ODD DAYS.  DURATION 218 DAYS ?
     Route: 048
     Dates: start: 19820101, end: 20041217

REACTIONS (4)
  - CARDIOVASCULAR DISORDER [None]
  - EXTREMITY NECROSIS [None]
  - PAIN [None]
  - SKIN NECROSIS [None]
